FAERS Safety Report 10627633 (Version 1)
Quarter: 2014Q4

REPORT INFORMATION
  Report Type: Spontaneous
  Country: GB (occurrence: GB)
  Receive Date: 20141205
  Receipt Date: 20141205
  Transmission Date: 20150529
  Serious: Yes (Life-Threatening, Hospitalization)
  Sender: FDA-Public Use
  Company Number: GB-ABBVIE-14K-167-1316105-00

PATIENT
  Age: 41 Year
  Sex: Male
  Weight: 105 kg

DRUGS (1)
  1. HUMIRA [Suspect]
     Active Substance: ADALIMUMAB
     Indication: ANKYLOSING SPONDYLITIS
     Route: 051
     Dates: start: 20140310, end: 20141017

REACTIONS (1)
  - Kidney transplant rejection [Not Recovered/Not Resolved]
